FAERS Safety Report 6295502-X (Version None)
Quarter: 2009Q3

REPORT INFORMATION
  Report Type: 
  Country: None (occurrence: None)
  Receive Date: 20090803
  Receipt Date: 20090708
  Transmission Date: 20100115
  Serious: Yes (Other)
  Sender: FDA-Public Use
  Company Number: JP-MERCK-0907USA01636

PATIENT
  Age: 38 Year
  Sex: Female

DRUGS (13)
  1. DECADRON [Suspect]
     Route: 065
     Dates: start: 20081208
  2. GLOBULIN, IMMUNE [Concomitant]
     Route: 065
     Dates: start: 20081205
  3. PLATELET CONCENTRATE [Concomitant]
     Route: 042
     Dates: start: 20081206, end: 20081206
  4. PLATELET CONCENTRATE [Concomitant]
     Route: 042
     Dates: start: 20081207, end: 20081207
  5. PLATELET CONCENTRATE [Concomitant]
     Route: 042
     Dates: start: 20081210, end: 20081210
  6. PLATELET CONCENTRATE [Concomitant]
     Route: 042
     Dates: start: 20081211, end: 20081211
  7. REMETRERK [Concomitant]
     Route: 042
     Dates: start: 20081211, end: 20081211
  8. DIPRIVAN [Concomitant]
     Route: 042
     Dates: start: 20081211, end: 20081211
  9. ESLAX [Concomitant]
     Route: 042
     Dates: start: 20081211, end: 20081211
  10. SEVOFLURANE [Concomitant]
     Dates: start: 20081211
  11. ULTIVA [Concomitant]
     Route: 042
     Dates: start: 20081211
  12. BLOOD CELLS, RED [Concomitant]
     Route: 042
     Dates: start: 20081211, end: 20081211
  13. CEFAMEZIN [Concomitant]
     Route: 042
     Dates: start: 20081211, end: 20081211

REACTIONS (5)
  - ANAPHYLACTIC SHOCK [None]
  - CAESAREAN SECTION [None]
  - CARDIOVASCULAR DISORDER [None]
  - DRUG EXPOSURE DURING PREGNANCY [None]
  - RESPIRATORY DISORDER [None]
